FAERS Safety Report 18366592 (Version 1)
Quarter: 2020Q4

REPORT INFORMATION
  Report Type: Report from Study
  Country: US (occurrence: US)
  Receive Date: 20201009
  Receipt Date: 20201009
  Transmission Date: 20210114
  Serious: Yes (Other)
  Sender: FDA-Public Use
  Company Number: US-PFIZER INC-2020379752

PATIENT
  Sex: Male
  Weight: 85 kg

DRUGS (4)
  1. MERCAPTOPURINE. [Suspect]
     Active Substance: MERCAPTOPURINE
     Dosage: UNK
  2. DEXAMETHASONE. [Suspect]
     Active Substance: DEXAMETHASONE
     Dosage: UNK
     Dates: start: 20200804, end: 20200808
  3. VINCRISTINE SULFATE. [Suspect]
     Active Substance: VINCRISTINE SULFATE
     Dosage: UNK
  4. METHOTREXATE SODIUM. [Suspect]
     Active Substance: METHOTREXATE SODIUM
     Dosage: UNK

REACTIONS (1)
  - Osteonecrosis [Recovering/Resolving]

NARRATIVE: CASE EVENT DATE: 20200822
